FAERS Safety Report 8043641 (Version 5)
Quarter: 2013Q1

REPORT INFORMATION
  Report Type: Report from Study
  Country: DE (occurrence: DE)
  Receive Date: 20110719
  Receipt Date: 20130225
  Transmission Date: 20140127
  Serious: Yes (Life-Threatening, Hospitalization)
  Sender: FDA-Public Use
  Company Number: DE-ROCHE-788007

PATIENT
  Age: 68 Year
  Sex: Female
  Weight: 158 kg

DRUGS (4)
  1. CAPECITABINE [Suspect]
     Indication: BREAST CANCER
     Dosage: DOSE: 825 MG/M2, TWICE PER DAY, FROM DAYS 1 TO 14.
     Route: 048
     Dates: start: 20110609, end: 20110704
  2. DOCETAXEL [Suspect]
     Indication: BREAST CANCER
     Dosage: DSOE FORM :UNSPECIFIED. RECENT DOSE: 30 JUN 2011
     Route: 042
  3. L-THYROX [Concomitant]
     Indication: THYROIDECTOMY
     Dosage: DOSE: 24 MG LEVOTHROSINE
     Route: 048
     Dates: start: 2005, end: 20110728
  4. BISOPROLOL [Concomitant]
     Indication: HYPERTENSION
     Route: 048

REACTIONS (7)
  - Renal failure [Recovered/Resolved]
  - Febrile neutropenia [Recovered/Resolved]
  - Pancreatic atrophy [Unknown]
  - Atrial fibrillation [Recovered/Resolved]
  - Tachycardia [Recovered/Resolved]
  - Enterobacter infection [Recovered/Resolved]
  - Enterocolitis infectious [Recovered/Resolved]
